FAERS Safety Report 8387070-3 (Version None)
Quarter: 2012Q2

REPORT INFORMATION
  Report Type: 
  Country: None (occurrence: None)
  Receive Date: 20120523
  Receipt Date: 20120523
  Transmission Date: 20120825
  Serious: Yes (Other)
  Sender: FDA-Public Use
  Company Number: None

PATIENT
  Age: 61 Year
  Sex: Male
  Weight: 82.5547 kg

DRUGS (1)
  1. ULTRAM [Suspect]
     Indication: ARTHRALGIA
     Dosage: 50 MG BID
     Dates: start: 20120226, end: 20120302

REACTIONS (3)
  - CHEST PAIN [None]
  - DYSPNOEA [None]
  - HEART RATE DECREASED [None]
